FAERS Safety Report 7116147-5 (Version None)
Quarter: 2010Q4

REPORT INFORMATION
  Report Type: 
  Country: None (occurrence: None)
  Receive Date: 20101122
  Receipt Date: 20101109
  Transmission Date: 20110411
  Serious: Yes (Hospitalization)
  Sender: FDA-Public Use
  Company Number: PHHY2010FR76212

PATIENT
  Sex: Female

DRUGS (7)
  1. VOLTARENE LP [Suspect]
     Indication: BACK PAIN
     Dosage: 75 MG, BID
     Route: 048
     Dates: start: 20100916, end: 20100927
  2. KARDEGIC [Suspect]
     Indication: ISCHAEMIC CARDIOMYOPATHY
     Dosage: 75 MG, QD
     Route: 048
     Dates: start: 20100801, end: 20100927
  3. ESOMEPRAZOLE [Concomitant]
     Dosage: 20 MG, QD
     Route: 048
     Dates: start: 20100916, end: 20100927
  4. DAFALGAN [Concomitant]
     Indication: BACK PAIN
     Dosage: 1 G, TID
  5. CARDENSIEL [Concomitant]
     Indication: ISCHAEMIC CARDIOMYOPATHY
     Dosage: 2.5 MG, UNK
     Route: 048
     Dates: start: 20100801
  6. OSTRAM-VIT.D3 [Concomitant]
     Indication: CALCIUM DEFICIENCY
     Dosage: 1 DF, QD
     Route: 048
  7. REMINYL [Concomitant]
     Indication: MEMORY IMPAIRMENT
     Dosage: 8 MG, QD
     Route: 048

REACTIONS (18)
  - ATROPHY [None]
  - BLOOD PRESSURE FLUCTUATION [None]
  - BLOOD UREA INCREASED [None]
  - C-REACTIVE PROTEIN INCREASED [None]
  - EPIGASTRIC DISCOMFORT [None]
  - ESCHERICHIA INFECTION [None]
  - GASTRIC ULCER [None]
  - GASTRITIS [None]
  - HAEMATEMESIS [None]
  - HAEMOGLOBIN DECREASED [None]
  - HELICOBACTER INFECTION [None]
  - INFLAMMATION [None]
  - LEUKOCYTOSIS [None]
  - MELAENA [None]
  - METAPLASIA [None]
  - OESOPHAGITIS [None]
  - TACHYCARDIA [None]
  - THROMBOSIS [None]
